FAERS Safety Report 18510185 (Version 1)
Quarter: 2020Q4

REPORT INFORMATION
  Report Type: Spontaneous
  Country: US (occurrence: US)
  Receive Date: 20201117
  Receipt Date: 20201117
  Transmission Date: 20210114
  Serious: No
  Sender: FDA-Public Use
  Company Number: US-GLAXOSMITHKLINE-US2020223102

PATIENT
  Age: 56 Year
  Sex: Female

DRUGS (2)
  1. ROCEPHIN [Concomitant]
     Active Substance: CEFTRIAXONE SODIUM
     Indication: PRODUCT USED FOR UNKNOWN INDICATION
     Dosage: UNK
     Route: 065
  2. TRELEGY ELLIPTA [Suspect]
     Active Substance: FLUTICASONE FUROATE\UMECLIDINIUM BROMIDE\VILANTEROL TRIFENATATE
     Indication: PRODUCT USED FOR UNKNOWN INDICATION
     Dosage: UNK UNK, QD, 100/62.5/25 MCG
     Route: 055
     Dates: start: 2020

REACTIONS (6)
  - Wheezing [Unknown]
  - Asthma [Recovered/Resolved]
  - Wrong technique in device usage process [Unknown]
  - Malaise [Unknown]
  - Product dose omission issue [Unknown]
  - Cough [Unknown]

NARRATIVE: CASE EVENT DATE: 20201109
